FAERS Safety Report 20634248 (Version 1)
Quarter: 2022Q1

REPORT INFORMATION
  Report Type: Spontaneous
  Country: US (occurrence: US)
  Receive Date: 20220325
  Receipt Date: 20220325
  Transmission Date: 20220423
  Serious: Yes (Hospitalization, Disabling, Other)
  Sender: FDA-Public Use
  Company Number: US-NOVOPROD-901879

PATIENT
  Age: 79 Year
  Sex: Female

DRUGS (1)
  1. NOVOLOG MIX 70/30 [Suspect]
     Active Substance: INSULIN ASPART
     Indication: Product used for unknown indication
     Dosage: UNK
     Route: 058

REACTIONS (4)
  - Myocardial infarction [Recovered/Resolved]
  - Female reproductive tract disorder [Not Recovered/Not Resolved]
  - Disability [Not Recovered/Not Resolved]
  - Ankle fracture [Not Recovered/Not Resolved]
